FAERS Safety Report 15711351 (Version 1)
Quarter: 2018Q4

REPORT INFORMATION
  Report Type: Spontaneous
  Country: CN (occurrence: CN)
  Receive Date: 20181211
  Receipt Date: 20181211
  Transmission Date: 20190205
  Serious: Yes (Other)
  Sender: FDA-Public Use
  Company Number: CN-ALLERGAN-1823788US

PATIENT
  Age: 44 Year
  Sex: Male
  Weight: 77.5 kg

DRUGS (7)
  1. ESCITALOPRAM OXALATE - BP [Suspect]
     Active Substance: ESCITALOPRAM OXALATE
     Indication: ANXIETY
     Dosage: 20 MG, BID
     Route: 065
     Dates: start: 2016
  2. CITALOPRAM HYDROBROMIDE - BP [Suspect]
     Active Substance: CITALOPRAM HYDROBROMIDE
     Indication: DEPRESSION
     Dosage: 20 MG, UNKNOWN
     Route: 048
     Dates: start: 201706
  3. ESCITALOPRAM OXALATE - BP [Suspect]
     Active Substance: ESCITALOPRAM OXALATE
     Indication: OBSESSIVE-COMPULSIVE DISORDER
     Dosage: 20 MG, BID
     Route: 065
     Dates: start: 20180915
  4. QUETIAPINE. [Concomitant]
     Active Substance: QUETIAPINE
     Dosage: 1 TABLET, BID (ONE IN THE MORNING AND ONE IN THE EVENING)
     Route: 065
  5. ESCITALOPRAM OXALATE - BP [Suspect]
     Active Substance: ESCITALOPRAM OXALATE
     Indication: DEPRESSIVE SYMPTOM
     Dosage: UNK
     Route: 065
     Dates: start: 2015
  6. ESCITALOPRAM OXALATE - BP [Suspect]
     Active Substance: ESCITALOPRAM OXALATE
     Indication: DEPRESSION
     Dosage: 40 MG, BID
     Route: 065
  7. CITALOPRAM HYDROBROMIDE - BP [Suspect]
     Active Substance: CITALOPRAM HYDROBROMIDE
     Dosage: 20 MG, TID (1 TABLET IN THE MORNING AND 2 TABLETS IN THE AFTERNOON)
     Route: 048

REACTIONS (13)
  - Reduced facial expression [Unknown]
  - Suicidal ideation [Unknown]
  - Drug ineffective [Unknown]
  - Off label use [Unknown]
  - Movement disorder [Unknown]
  - Anxiety [Unknown]
  - Palpitations [Unknown]
  - Musculoskeletal stiffness [Unknown]
  - Dysphemia [Unknown]
  - Prescribed overdose [Unknown]
  - Libido increased [Unknown]
  - Product use issue [Unknown]
  - Condition aggravated [Unknown]

NARRATIVE: CASE EVENT DATE: 20170921
